FAERS Safety Report 5225311-1 (Version None)
Quarter: 2007Q1

REPORT INFORMATION
  Report Type: 
  Country: None (occurrence: None)
  Receive Date: 20070131
  Receipt Date: 20070122
  Transmission Date: 20070707
  Serious: Yes (Life-Threatening, Hospitalization, Other)
  Sender: FDA-Public Use
  Company Number: US-AVENTIS-200618091US

PATIENT
  Sex: Male
  Weight: 83.73 kg

DRUGS (28)
  1. LANTUS [Suspect]
     Dosage: DOSE: UNK
     Dates: end: 20061001
  2. LANTUS [Suspect]
     Dosage: DOSE: 25 IN AM AND 22 IN PM
     Dates: end: 20061001
  3. LANTUS [Suspect]
     Dosage: DOSE: 24 IN AM AND 30 IN PM
     Dates: start: 20060901, end: 20060101
  4. LANTUS [Suspect]
     Dosage: DOSE: 22 U IN AM AND 20-26 U IN PM
     Dates: start: 20060101, end: 20061001
  5. LANTUS [Suspect]
     Dosage: DOSE: 23 U AM 16 U PM
     Dates: start: 20061001, end: 20061001
  6. LANTUS [Suspect]
     Dosage: DOSE: 30 U IN AM AND 10 U IN PM
     Dates: start: 20061001
  7. METFORMIN HCL [Concomitant]
  8. METFORMIN HCL [Concomitant]
  9. GEMFIBROZIL [Concomitant]
  10. METOPROLOL TARTRATE [Concomitant]
  11. AVANDIA [Concomitant]
  12. LISINOPRIL [Concomitant]
  13. LISINOPRIL [Concomitant]
  14. LISINOPRIL [Concomitant]
  15. PLAVIX [Concomitant]
  16. ASPIRIN [Concomitant]
  17. NEXIUM [Concomitant]
     Dates: start: 20060701
  18. NEXIUM [Concomitant]
  19. ASPIRIN [Concomitant]
  20. VITAMINS NOS [Concomitant]
     Dosage: DOSE: UNK
  21. CALCIUM SUPPLEMENT [Concomitant]
     Dosage: DOSE: UNK
  22. GLUCOSAMINE [Concomitant]
     Dosage: DOSE: UNK
  23. HUMALOG [Concomitant]
     Dosage: DOSE: ON SLIDING SCALE WHEN BLOOD SUGAR IS GREATER THAN 150 BEGINNING W/2 UNITS
     Dates: start: 20061001
  24. INFLUENZA VACCINE [Concomitant]
     Dosage: DOSE: UNK
     Dates: start: 20061027, end: 20061027
  25. EXUBERA [Concomitant]
     Dosage: DOSE: UNK
     Dates: start: 20061001
  26. LEVEMIR [Concomitant]
     Dates: start: 20061001
  27. HYCOSAMINE [Concomitant]
  28. REGULAR INSULIN [Concomitant]
     Dosage: DOSE: SLIDING SCALE

REACTIONS (32)
  - ANAEMIA [None]
  - ASTHENIA [None]
  - BLOOD BICARBONATE ABNORMAL [None]
  - BLOOD BILIRUBIN INCREASED [None]
  - BLOOD GLUCOSE INCREASED [None]
  - BLOOD KETONE BODY PRESENT [None]
  - CHOLECYSTITIS [None]
  - CONFUSIONAL STATE [None]
  - DEHYDRATION [None]
  - DIABETIC KETOACIDOSIS [None]
  - DIZZINESS [None]
  - FATIGUE [None]
  - HEADACHE [None]
  - HYPERGLYCAEMIA [None]
  - HYPERKALAEMIA [None]
  - HYPERTENSION [None]
  - HYPOCHLORAEMIA [None]
  - HYPOGLYCAEMIA [None]
  - HYPONATRAEMIA [None]
  - INJECTION SITE BRUISING [None]
  - LIPOHYPERTROPHY [None]
  - MALAISE [None]
  - MALLORY-WEISS SYNDROME [None]
  - MELAENA [None]
  - NAUSEA [None]
  - OLIGURIA [None]
  - POLLAKIURIA [None]
  - RENAL FAILURE [None]
  - SOMNOLENCE [None]
  - THROAT IRRITATION [None]
  - ULCER [None]
  - VOMITING [None]
